FAERS Safety Report 6073952-4 (Version None)
Quarter: 2009Q1

REPORT INFORMATION
  Report Type: 
  Country: None (occurrence: None)
  Receive Date: 20090211
  Receipt Date: 20090203
  Transmission Date: 20090719
  Serious: Yes (Other)
  Sender: FDA-Public Use
  Company Number: PHEH2008US10710

PATIENT
  Age: 59 Year
  Sex: Female

DRUGS (1)
  1. RECLAST [Suspect]
     Dosage: UNK
     Dates: start: 20081126

REACTIONS (9)
  - FEELING ABNORMAL [None]
  - INFLUENZA LIKE ILLNESS [None]
  - MALAISE [None]
  - NAUSEA [None]
  - ONYCHALGIA [None]
  - PAIN [None]
  - PAIN OF SKIN [None]
  - SURGERY [None]
  - VOMITING [None]
